FAERS Safety Report 15200230 (Version 2)
Quarter: 2018Q3

REPORT INFORMATION
  Report Type: Report from Study
  Country: VN (occurrence: VN)
  Receive Date: 20180726
  Receipt Date: 20180730
  Transmission Date: 20181010
  Serious: No
  Sender: FDA-Public Use
  Company Number: VN-ASTRAZENECA-2018SE94213

PATIENT
  Age: 17070 Day
  Sex: Male

DRUGS (7)
  1. CEREBROLYSIN [Concomitant]
     Active Substance: CEREBROLYSIN
     Indication: ISCHAEMIC STROKE
     Route: 042
     Dates: start: 20180717
  2. NIVALIN [Concomitant]
     Active Substance: GALANTAMINE HYDROBROMIDE
     Indication: ISCHAEMIC STROKE
     Route: 030
     Dates: start: 20180717
  3. ASPIRIN. [Concomitant]
     Active Substance: ASPIRIN
     Indication: ISCHAEMIC STROKE
     Route: 048
     Dates: start: 20180717
  4. ATORVASTATIN [Concomitant]
     Active Substance: ATORVASTATIN
     Indication: VENOUS THROMBOSIS
     Route: 048
     Dates: start: 20180716
  5. AZD6140 [Suspect]
     Active Substance: TICAGRELOR
     Indication: CARDIOVASCULAR EVENT PROPHYLAXIS
     Route: 048
     Dates: start: 20180716
  6. OMEPRAZOLE. [Concomitant]
     Active Substance: OMEPRAZOLE
     Indication: GASTROINTESTINAL HAEMORRHAGE
     Dosage: IN MG
     Route: 048
     Dates: start: 20180717
  7. ASPIRIN. [Concomitant]
     Active Substance: ASPIRIN
     Indication: ISCHAEMIC STROKE
     Route: 048
     Dates: start: 20180716, end: 20180716

REACTIONS (1)
  - Carotid artery aneurysm [Recovering/Resolving]

NARRATIVE: CASE EVENT DATE: 20180719
